FAERS Safety Report 11163776 (Version 1)
Quarter: 2015Q2

REPORT INFORMATION
  Report Type: Spontaneous
  Country: US (occurrence: US)
  Receive Date: 20150604
  Receipt Date: 20150604
  Transmission Date: 20150821
  Serious: No
  Sender: FDA-Public Use
  Company Number: US-SUN PHARMACEUTICAL INDUSTRIES LTD-2014SUN01787

PATIENT
  Age: 30 Year
  Sex: Male
  Weight: 85.26 kg

DRUGS (3)
  1. OXYCODONE HCL C-II TABS 30MG [Suspect]
     Active Substance: OXYCODONE HYDROCHLORIDE
     Indication: NERVOUS SYSTEM DISORDER
     Dosage: 2 DF, FIVE TIMES DAILY
     Route: 048
     Dates: end: 20140725
  2. OXYCONTIN TIME RELEASE [Concomitant]
     Dosage: UNK
  3. MULTIVITAMINS [Concomitant]
     Active Substance: VITAMINS

REACTIONS (11)
  - Diarrhoea [Recovering/Resolving]
  - Abdominal distension [Recovering/Resolving]
  - Eructation [Recovering/Resolving]
  - Flatulence [Recovering/Resolving]
  - Dysgeusia [Recovering/Resolving]
  - Abdominal pain [Recovering/Resolving]
  - Odynophagia [Recovering/Resolving]
  - Dyspnoea [Recovering/Resolving]
  - Paraesthesia oral [Recovering/Resolving]
  - Nausea [Recovering/Resolving]
  - Muscle spasms [Recovering/Resolving]

NARRATIVE: CASE EVENT DATE: 201406
